FAERS Safety Report 18340103 (Version 1)
Quarter: 2020Q4

REPORT INFORMATION
  Report Type: Spontaneous
  Country: US (occurrence: US)
  Receive Date: 20201002
  Receipt Date: 20201002
  Transmission Date: 20210113
  Serious: Yes (Other)
  Sender: FDA-Public Use
  Company Number: 1626962-2020-00003

PATIENT
  Age: 80 Year
  Sex: Male
  Weight: 68.18 kg

DRUGS (15)
  1. T-RELIEF TABLETS [Suspect]
     Active Substance: HOMEOPATHICS
     Indication: INSOMNIA
     Route: 048
     Dates: start: 20200805, end: 20200806
  2. ZETIA [Concomitant]
     Active Substance: EZETIMIBE
  3. ASPIRIN. [Concomitant]
     Active Substance: ASPIRIN
  4. MIRALAX [Concomitant]
     Active Substance: POLYETHYLENE GLYCOL 3350
  5. AQUA COLLAGEN COENZYME Q10 HYDRO MASK [Concomitant]
     Active Substance: ADENOSINE
  6. RANEXA [Concomitant]
     Active Substance: RANOLAZINE
  7. ATORVASTATIN CALCIUM. [Concomitant]
     Active Substance: ATORVASTATIN CALCIUM
  8. ACID REDUCER (FAMOTIDINE) [Concomitant]
     Active Substance: FAMOTIDINE
  9. HYDROXYUREA. [Concomitant]
     Active Substance: HYDROXYUREA
  10. DILTIAZEM. [Concomitant]
     Active Substance: DILTIAZEM
  11. VITAMIN D [Concomitant]
     Active Substance: VITAMIN D NOS
  12. OMEGA 3 [Concomitant]
     Active Substance: OMEGA-3 FATTY ACIDS
  13. METAMUCIL THERAPY FOR REGULARITY [Concomitant]
     Active Substance: PSYLLIUM HUSK
  14. LISINOPRIL. [Concomitant]
     Active Substance: LISINOPRIL
  15. AVODART [Concomitant]
     Active Substance: DUTASTERIDE

REACTIONS (1)
  - Vertigo [Recovered/Resolved]

NARRATIVE: CASE EVENT DATE: 20200806
